FAERS Safety Report 11419019 (Version 3)
Quarter: 2015Q3

REPORT INFORMATION
  Report Type: Report from Study
  Country: US (occurrence: US)
  Receive Date: 20150826
  Receipt Date: 20150903
  Transmission Date: 20151125
  Serious: Yes (Hospitalization, Other)
  Sender: FDA-Public Use
  Company Number: US-GILEAD-2015-0169243

PATIENT
  Age: 51 Year
  Sex: Male

DRUGS (4)
  1. ADCIRCA [Concomitant]
     Active Substance: TADALAFIL
  2. ADEMPAS [Concomitant]
     Active Substance: RIOCIGUAT
  3. AMBRISENTAN [Suspect]
     Active Substance: AMBRISENTAN
     Indication: PRODUCT USED FOR UNKNOWN INDICATION
     Dosage: 5 MG, QD
     Route: 065
     Dates: start: 20150616
  4. REMODULIN [Concomitant]
     Active Substance: TREPROSTINIL
     Dosage: UNK
     Dates: start: 20150818

REACTIONS (9)
  - Injection site warmth [Unknown]
  - Pain in jaw [Unknown]
  - Headache [Unknown]
  - Injection site pain [Unknown]
  - Injection site erythema [Unknown]
  - Abdominal distension [Unknown]
  - Hypotension [Unknown]
  - Pulmonary arterial hypertension [Unknown]
  - Renal failure [Unknown]
